FAERS Safety Report 7014759-0 (Version None)
Quarter: 2010Q3

REPORT INFORMATION
  Report Type: 
  Country: None (occurrence: None)
  Receive Date: 20100927
  Receipt Date: 20100915
  Transmission Date: 20110219
  Serious: Yes (Other)
  Sender: FDA-Public Use
  Company Number: JP-ROCHE-728797

PATIENT
  Age: 76 Year
  Sex: Male

DRUGS (1)
  1. AVASTIN [Suspect]
     Indication: POLYPOIDAL CHOROIDAL VASCULOPATHY
     Dosage: NOTE: DOSAGE IS UNCERTAIN AND 4 COURSES
     Route: 041

REACTIONS (1)
  - DETACHMENT OF RETINAL PIGMENT EPITHELIUM [None]
